FAERS Safety Report 10714899 (Version 6)
Quarter: 2015Q4

REPORT INFORMATION
  Report Type: Report from Study
  Country: US (occurrence: US)
  Receive Date: 20150115
  Receipt Date: 20151022
  Transmission Date: 20160304
  Serious: Yes (Death, Hospitalization)
  Sender: FDA-Public Use
  Company Number: US-ACTELION-A-US2015-111007

PATIENT
  Age: 68 Year
  Sex: Female

DRUGS (3)
  1. ADCIRCA [Concomitant]
     Active Substance: TADALAFIL
     Dosage: UNK
  2. MACITENTAN [Suspect]
     Active Substance: MACITENTAN
     Indication: PULMONARY ARTERIAL HYPERTENSION
     Dosage: 10 MG, QD
     Route: 048
     Dates: start: 201408, end: 20151001
  3. TYVASO [Concomitant]
     Active Substance: TREPROSTINIL

REACTIONS (8)
  - Disease progression [Fatal]
  - Cardio-respiratory arrest [Recovering/Resolving]
  - Septic shock [Recovered/Resolved]
  - Pneumonia [Recovering/Resolving]
  - Loss of consciousness [Recovering/Resolving]
  - Pulmonary arterial hypertension [Fatal]
  - Sepsis [Recovered/Resolved]
  - Syncope [Unknown]

NARRATIVE: CASE EVENT DATE: 20141214
